FAERS Safety Report 7303790-3 (Version None)
Quarter: 2011Q1

REPORT INFORMATION
  Report Type: 
  Country: None (occurrence: None)
  Receive Date: 20110221
  Receipt Date: 20110209
  Transmission Date: 20110831
  Serious: Yes (Death)
  Sender: FDA-Public Use
  Company Number: TW-ROCHE-758610

PATIENT
  Age: 2 Month
  Sex: Male
  Weight: 1.7 kg

DRUGS (1)
  1. TAMIFLU [Suspect]
     Indication: INFLUENZA
     Route: 065
     Dates: start: 20110101

REACTIONS (1)
  - H1N1 INFLUENZA [None]
